FAERS Safety Report 19757055 (Version 1)
Quarter: 2021Q3

REPORT INFORMATION
  Report Type: Other
  Country: US (occurrence: US)
  Receive Date: 20210827
  Receipt Date: 20210827
  Transmission Date: 20211014
  Serious: Yes (Other)
  Sender: FDA-Public Use
  Company Number: US-APOTEX-2021AP040090

PATIENT
  Age: 61 Year
  Sex: Male

DRUGS (2)
  1. RANITIDINE TABLETS [Suspect]
     Active Substance: RANITIDINE HYDROCHLORIDE
     Indication: DYSPEPSIA
     Dosage: OTHER (PERIODS OF DAILY USE AND PERIODS OF NON USE, USED MORE OFTEN THAN NOT)
     Route: 065
     Dates: start: 201001, end: 202002
  2. ZANTAC [Suspect]
     Active Substance: RANITIDINE HYDROCHLORIDE
     Indication: DYSPEPSIA
     Dosage: OTHER (PERIODS OF DAILY USE AND PERIODS OF NON USE, MORE OFTEN USED THAN NOT.)
     Route: 065
     Dates: start: 201001, end: 202002

REACTIONS (1)
  - Colorectal cancer [Not Recovered/Not Resolved]

NARRATIVE: CASE EVENT DATE: 20190101
